FAERS Safety Report 5245456-X (Version None)
Quarter: 2007Q1

REPORT INFORMATION
  Report Type: 
  Country: None (occurrence: None)
  Receive Date: 20070223
  Receipt Date: 20070212
  Transmission Date: 20070707
  Serious: Yes (Other)
  Sender: FDA-Public Use
  Company Number: US-ELI_LILLY_AND_COMPANY-US200601004863

PATIENT
  Age: 47 Year
  Sex: Female
  Weight: 131.52 kg

DRUGS (45)
  1. CELEXA [Concomitant]
     Dosage: 40 MG, UNK
     Route: 048
     Dates: start: 20031015
  2. ENALAPRIL MALEATE [Concomitant]
     Dosage: 10 MG, DAILY (1/D)
     Route: 048
     Dates: start: 20031015
  3. ENALAPRIL MALEATE [Concomitant]
     Dosage: 20 MG, DAILY (1/D)
     Dates: start: 20050614
  4. ENALAPRIL MALEATE [Concomitant]
     Dosage: 20 MG, 2/D
     Dates: start: 20050721
  5. GEMFIBROZIL [Concomitant]
     Dosage: 600 MG, 2/D
     Route: 048
     Dates: start: 20031015
  6. GEMFIBROZIL [Concomitant]
     Dosage: 600 MG, 2/D
     Route: 048
     Dates: start: 20040615, end: 20050101
  7. CLONAZEPAM [Concomitant]
     Dosage: 1 MG, UNK
     Dates: start: 20031015
  8. CLONAZEPAM [Concomitant]
     Dosage: 1 MG, 2/D
     Dates: start: 20031031
  9. CLONAZEPAM [Concomitant]
     Dosage: 1 MG, 3/D
     Dates: start: 20031123
  10. ATENOLOL [Concomitant]
     Dosage: 100 MG, DAILY (1/D)
     Route: 048
     Dates: start: 20031015
  11. ATENOLOL [Concomitant]
     Dosage: 25 MG, DAILY (1/D)
     Dates: start: 20050414
  12. TRAZODONE HCL [Concomitant]
     Dosage: 100 MG, DAILY (1/D)
     Route: 048
     Dates: start: 20031015
  13. LEVOXYL [Concomitant]
     Indication: THYROID DISORDER
     Dosage: 50 UG, DAILY (1/D)
     Route: 048
     Dates: start: 20031015
  14. LEVOXYL [Concomitant]
     Dosage: 75 UG, DAILY (1/D)
     Route: 048
     Dates: start: 20040109
  15. LEVOXYL [Concomitant]
     Dosage: 100 UG, DAILY (1/D)
     Route: 048
     Dates: start: 20040225, end: 20040324
  16. LEVOXYL [Concomitant]
     Dosage: 125 UG, DAILY (1/D)
     Route: 048
     Dates: start: 20040324
  17. LEVOXYL [Concomitant]
     Dosage: 137 UG, DAILY (1/D)
     Route: 048
     Dates: start: 20050523
  18. DEPAKOTE ER [Concomitant]
     Dosage: 500 MG, 2/D
     Route: 048
     Dates: start: 20030814
  19. BACLOFEN [Concomitant]
     Dosage: 10 MG, UNK
     Route: 048
     Dates: start: 20031110
  20. BACLOFEN [Concomitant]
     Dosage: 10 MG, 3/D
     Route: 048
     Dates: start: 20031121, end: 20050413
  21. BACLOFEN [Concomitant]
     Dosage: 15 MG, DAILY (1/D)
     Dates: start: 20050520
  22. BACLOFEN [Concomitant]
     Dosage: 5 MG, 3/D
     Route: 048
     Dates: start: 20050408
  23. NEURONTIN [Concomitant]
     Dosage: 300 MG, 3/D
     Route: 048
     Dates: start: 20031119, end: 20040908
  24. NEURONTIN [Concomitant]
     Dosage: 600 MG, 3/D
     Route: 048
     Dates: start: 20040909
  25. NEURONTIN [Concomitant]
     Dosage: 600 MG, 4/D
     Dates: start: 20050712
  26. NEURONTIN [Concomitant]
     Dosage: 300 MG, DAILY (1/D)
     Route: 048
     Dates: start: 20031022
  27. AMITRIPTYLINE HYDROCHLORIDE [Concomitant]
     Dosage: 25 MG, DAILY (1/D)
     Route: 048
     Dates: start: 20040322
  28. AMITRIPTYLINE HYDROCHLORIDE [Concomitant]
     Dosage: 25 MG, 2/D
     Dates: start: 20051121
  29. FUROSEMIDE [Concomitant]
     Dosage: 20 MG, DAILY (1/D)
     Route: 048
     Dates: start: 20040623, end: 20040831
  30. FUROSEMIDE [Concomitant]
     Dosage: 40 MG, EACH MORNING
     Route: 048
     Dates: start: 20040715
  31. FUROSEMIDE [Concomitant]
     Dosage: 20 MG, DAILY (1/D)
     Route: 048
     Dates: start: 20050928
  32. LIPITOR [Concomitant]
     Dosage: 40 MG, DAILY (1/D)
     Route: 048
     Dates: start: 20041103, end: 20050413
  33. QUINAPRIL [Concomitant]
     Dosage: 40 MG, DAILY (1/D)
     Dates: start: 20050712
  34. TOPAMAX [Concomitant]
     Dosage: 75 MG, DAILY (1/D)
     Dates: start: 20050726
  35. TOPAMAX [Concomitant]
     Dosage: 50 MG, DAILY (1/D)
     Dates: start: 20050830
  36. NORVASC [Concomitant]
     Dosage: 10 MG, DAILY (1/D)
     Dates: start: 20050907
  37. HYDROCHLOROTHIAZIDE [Concomitant]
     Dosage: 50 MG, UNK
     Dates: start: 20050907
  38. ASPIRIN [Concomitant]
     Dosage: 325 MG, DAILY (1/D)
     Route: 048
  39. ULTRAM [Concomitant]
     Dosage: 50 MG, OTHER
     Route: 048
     Dates: start: 20040225, end: 20050413
  40. ULTRAM [Concomitant]
     Dosage: 50 MG, 3/D
     Route: 048
     Dates: start: 20040413
  41. VICODIN [Concomitant]
     Dosage: UNK, OTHER
     Route: 048
     Dates: start: 20040301, end: 20040513
  42. VICODIN [Concomitant]
     Dosage: UNK, 3/D
     Route: 048
     Dates: start: 20040714
  43. HEPARIN [Concomitant]
     Route: 058
     Dates: start: 20040601
  44. ZYPREXA [Suspect]
     Indication: DEPRESSION
     Dosage: UNK, UNK
     Dates: start: 20020101
  45. ZYPREXA [Suspect]
     Dosage: 5 MG, DAILY (1/D)
     Route: 048
     Dates: start: 20031015

REACTIONS (17)
  - AORTIC ARTERIOSCLEROSIS [None]
  - ASPARTATE AMINOTRANSFERASE INCREASED [None]
  - BLOOD CHOLESTEROL INCREASED [None]
  - BLOOD TRIGLYCERIDES INCREASED [None]
  - CARDIAC FAILURE CONGESTIVE [None]
  - CAROTID ARTERY STENOSIS [None]
  - CEREBRAL INFARCTION [None]
  - CONTUSION [None]
  - DIABETES MELLITUS NON-INSULIN-DEPENDENT [None]
  - HAEMATOCHEZIA [None]
  - HYPOTENSION [None]
  - NEUROPATHY PERIPHERAL [None]
  - OEDEMA PERIPHERAL [None]
  - PAIN IN EXTREMITY [None]
  - RECTAL HAEMORRHAGE [None]
  - VENOUS THROMBOSIS LIMB [None]
  - WEIGHT INCREASED [None]
